FAERS Safety Report 9486703 (Version 2)
Quarter: 2013Q3

REPORT INFORMATION
  Report Type: Spontaneous
  Country: GB (occurrence: GB)
  Receive Date: 20130829
  Receipt Date: 20130829
  Transmission Date: 20140515
  Serious: Yes (Other)
  Sender: FDA-Public Use
  Company Number: GB-BAUSCH-BL-2013-004551

PATIENT
  Age: 4 Year
  Sex: Male

DRUGS (1)
  1. MINIMS CYCLOPENTOLATE HYDROCHLORIDE 1.0% W/V EYE DROPS, SOLUTION [Suspect]
     Indication: OPHTHALMOLOGICAL EXAMINATION
     Route: 047
     Dates: start: 20130721, end: 20130721

REACTIONS (2)
  - Somnolence [Recovered/Resolved]
  - Tachycardia [Recovered/Resolved]
